FAERS Safety Report 9295977 (Version 1)
Quarter: 2013Q2

REPORT INFORMATION
  Report Type: Spontaneous
  Country: DE (occurrence: DE)
  Receive Date: 20130517
  Receipt Date: 20130517
  Transmission Date: 20140414
  Serious: Yes (Other)
  Sender: FDA-Public Use
  Company Number: DE-PFIZER INC-2013153620

PATIENT
  Age: 87 Year
  Sex: 0

DRUGS (1)
  1. LYRICA [Suspect]
     Indication: POLYNEUROPATHY
     Dosage: 75 MG, 2X/DAY
     Dates: start: 20130501

REACTIONS (2)
  - Arrhythmia [Unknown]
  - Extrasystoles [Unknown]
